FAERS Safety Report 6805405-7 (Version None)
Quarter: 2010Q2

REPORT INFORMATION
  Report Type: 
  Country: None (occurrence: None)
  Receive Date: 20100628
  Receipt Date: 20080102
  Transmission Date: 20101027
  Serious: No
  Sender: FDA-Public Use
  Company Number: US-PFIZER INC-2007098328

PATIENT
  Sex: Female
  Weight: 65.77 kg

DRUGS (1)
  1. RELPAX [Suspect]
     Indication: MIGRAINE
     Route: 048

REACTIONS (1)
  - DRUG INEFFECTIVE [None]
